FAERS Safety Report 11729928 (Version 2)
Quarter: 2015Q4

REPORT INFORMATION
  Report Type: Report from Study
  Country: CA (occurrence: CA)
  Receive Date: 20151112
  Receipt Date: 20151209
  Transmission Date: 20160304
  Serious: Yes (Life-Threatening, Hospitalization, Other)
  Sender: FDA-Public Use
  Company Number: CA-ABBVIE-15K-028-1497892-00

PATIENT
  Age: 56 Year
  Sex: Female

DRUGS (5)
  1. HUMIRA [Suspect]
     Active Substance: ADALIMUMAB
     Indication: PSORIASIS
     Route: 058
     Dates: start: 20150326, end: 20150326
  2. CORTATE [Concomitant]
     Active Substance: HYDROCORTISONE
     Indication: PRODUCT USED FOR UNKNOWN INDICATION
  3. DERMOVATE [Concomitant]
     Active Substance: CLOBETASOL
     Indication: PRODUCT USED FOR UNKNOWN INDICATION
  4. VITAMIN B12 [Concomitant]
     Active Substance: CYANOCOBALAMIN
     Indication: PRODUCT USED FOR UNKNOWN INDICATION
     Route: 058
  5. HUMIRA [Suspect]
     Active Substance: ADALIMUMAB
     Route: 058
     Dates: start: 20150423

REACTIONS (12)
  - Acute myocardial infarction [Recovered/Resolved]
  - Supraventricular extrasystoles [Recovered/Resolved]
  - Troponin T increased [Unknown]
  - Hypoxia [Recovered/Resolved]
  - Hypokinesia [Unknown]
  - Blood creatine phosphokinase increased [Unknown]
  - Cardiac failure [Unknown]
  - Myocardial infarction [Unknown]
  - Bronchitis chronic [Unknown]
  - Pyrexia [Unknown]
  - Heart valve replacement [Recovered/Resolved]
  - Supraventricular tachycardia [Recovered/Resolved]

NARRATIVE: CASE EVENT DATE: 2015
